FAERS Safety Report 9774550 (Version 1)
Quarter: 2013Q4

REPORT INFORMATION
  Report Type: Other
  Country: GB (occurrence: GB)
  Receive Date: 20131220
  Receipt Date: 20131220
  Transmission Date: 20140711
  Serious: Yes (Other)
  Sender: FDA-Public Use
  Company Number: GB-PERRIGO-13GB012916

PATIENT
  Age: 52 Year
  Sex: Male
  Weight: 116 kg

DRUGS (3)
  1. COLD AND FLU RELIEF [Suspect]
     Indication: NASOPHARYNGITIS
     Dosage: 1 DF, QID
     Route: 048
     Dates: start: 20131205, end: 20131207
  2. ATENOLOL [Concomitant]
     Indication: PRODUCT USED FOR UNKNOWN INDICATION
     Dosage: UNK
     Route: 065
  3. BENDROFLUAZIDE [Concomitant]
     Indication: PRODUCT USED FOR UNKNOWN INDICATION
     Dosage: UNK
     Route: 065

REACTIONS (6)
  - Renal disorder [Recovering/Resolving]
  - Renal pain [Recovering/Resolving]
  - Prostate tenderness [Recovering/Resolving]
  - Testicular swelling [Recovering/Resolving]
  - Micturition urgency [Recovering/Resolving]
  - Dysuria [Recovering/Resolving]
